FAERS Safety Report 10761215 (Version 1)
Quarter: 2015Q1

REPORT INFORMATION
  Report Type: Spontaneous
  Country: US (occurrence: None)
  Receive Date: 20150203
  Receipt Date: 20150203
  Transmission Date: 20150721
  Serious: Yes (Hospitalization)
  Sender: FDA-Public Use
  Company Number: None

PATIENT
  Age: 30 Year
  Sex: Female
  Weight: 49 kg

DRUGS (1)
  1. TAMOXIFEN [Suspect]
     Active Substance: TAMOXIFEN
     Dates: start: 20141003, end: 20141214

REACTIONS (5)
  - Nausea [None]
  - Vomiting [None]
  - Failure to thrive [None]
  - Food intolerance [None]
  - Abdominal pain [None]

NARRATIVE: CASE EVENT DATE: 20141214
